FAERS Safety Report 5545370-6 (Version None)
Quarter: 2007Q4

REPORT INFORMATION
  Report Type: 
  Country: None (occurrence: None)
  Receive Date: 20071211
  Receipt Date: 20071205
  Transmission Date: 20080405
  Serious: Yes (Hospitalization)
  Sender: FDA-Public Use
  Company Number: US-BRISTOL-MYERS SQUIBB COMPANY-14005136

PATIENT
  Age: 52 Year
  Sex: Female
  Weight: 53 kg

DRUGS (11)
  1. DASATINIB [Suspect]
     Indication: MALIGNANT FIBROUS HISTIOCYTOMA
     Route: 048
     Dates: start: 20071025
  2. ACTONEL [Concomitant]
  3. CALTRATE [Concomitant]
  4. MYCELEX [Concomitant]
  5. PERCOCET [Concomitant]
  6. SENNA [Concomitant]
  7. MULTI-VITAMIN [Concomitant]
  8. OXYCONTIN [Concomitant]
  9. COMPAZINE [Concomitant]
  10. ATIVAN [Concomitant]
  11. LEXAPRO [Concomitant]

REACTIONS (3)
  - ANAEMIA [None]
  - DYSPNOEA [None]
  - LETHARGY [None]
